FAERS Safety Report 14426187 (Version 1)
Quarter: 2018Q1

REPORT INFORMATION
  Report Type: Spontaneous
  Country: IL (occurrence: IL)
  Receive Date: 20180123
  Receipt Date: 20180123
  Transmission Date: 20180509
  Serious: Yes (Other)
  Sender: FDA-Public Use
  Company Number: IL-SA-2018SA014618

PATIENT
  Age: 67 Year
  Sex: Female

DRUGS (7)
  1. PLAVIX [Suspect]
     Active Substance: CLOPIDOGREL BISULFATE
     Route: 065
  2. SERTRALINE HYDROCHLORIDE. [Concomitant]
     Active Substance: SERTRALINE HYDROCHLORIDE
  3. ATACAND [Concomitant]
     Active Substance: CANDESARTAN CILEXETIL
  4. VASODIP [Concomitant]
     Active Substance: LERCANIDIPINE HYDROCHLORIDE
  5. FAMOTIDINE. [Concomitant]
     Active Substance: FAMOTIDINE
  6. CARDILOC [Concomitant]
     Active Substance: BISOPROLOL FUMARATE
  7. RISPERIDONE. [Concomitant]
     Active Substance: RISPERIDONE

REACTIONS (2)
  - Head injury [Unknown]
  - Subdural haemorrhage [Unknown]
